FAERS Safety Report 20188452 (Version 1)
Quarter: 2021Q4

REPORT INFORMATION
  Report Type: Spontaneous
  Country: US (occurrence: None)
  Receive Date: 20211215
  Receipt Date: 20211215
  Transmission Date: 20220303
  Serious: Yes (Hospitalization)
  Sender: FDA-Public Use
  Company Number: None

PATIENT
  Sex: Female

DRUGS (3)
  1. PEGASYS [Suspect]
     Active Substance: PEGINTERFERON ALFA-2A
     Indication: Polycythaemia vera
     Dosage: FREQUENCY : WEEKLY;?
     Route: 058
     Dates: start: 20180317
  2. ASPIRIN [Concomitant]
     Active Substance: ASPIRIN
  3. HYDREA [Concomitant]
     Active Substance: HYDROXYUREA

REACTIONS (1)
  - Sepsis [None]
